FAERS Safety Report 10227856 (Version 1)
Quarter: 2014Q2

REPORT INFORMATION
  Report Type: Spontaneous
  Country: US (occurrence: None)
  Receive Date: 20140609
  Receipt Date: 20140609
  Transmission Date: 20141212
  Serious: Yes (Other)
  Sender: FDA-Public Use
  Company Number: None

PATIENT
  Age: 67 Year
  Sex: Male
  Weight: 104.78 kg

DRUGS (1)
  1. PROSCAR [Suspect]
     Indication: URINARY RETENTION
     Dosage: 10 PLUS YEARS, 1, ONCE DAILY, TAKEN BY MOUTH
     Route: 048

REACTIONS (7)
  - Weight increased [None]
  - Erectile dysfunction [None]
  - Penis disorder [None]
  - Testicular disorder [None]
  - Gynaecomastia [None]
  - Loss of libido [None]
  - Asthenia [None]
